FAERS Safety Report 5034720-5 (Version None)
Quarter: 2006Q2

REPORT INFORMATION
  Report Type: 
  Country: None (occurrence: None)
  Receive Date: 20060621
  Receipt Date: 20060221
  Transmission Date: 20061013
  Serious: Yes (Death, Life-Threatening)
  Sender: FDA-Public Use
  Company Number: NL200511002622

PATIENT
  Age: 48 Hour
  Sex: Female

DRUGS (13)
  1. GEMCITABINE [Suspect]
     Dosage: 1800 MG, INTRAVENOUS; SEE IMAGE
     Route: 042
     Dates: start: 20050914
  2. GEMCITABINE [Suspect]
     Dosage: 1800 MG, INTRAVENOUS; SEE IMAGE
     Route: 042
     Dates: start: 20050921
  3. GEMCITABINE [Suspect]
     Dosage: 1800 MG, INTRAVENOUS; SEE IMAGE
     Route: 042
     Dates: start: 20050928
  4. GEMCITABINE [Suspect]
     Dosage: 1800 MG, INTRAVENOUS; SEE IMAGE
     Route: 042
     Dates: start: 20051005
  5. DURAGESIC-100 [Concomitant]
  6. MORPHINE [Concomitant]
  7. TEMAZEPAM [Concomitant]
  8. ALDACTONE (ALDACTONE)/USA/(SPIRONOLACTONE) [Concomitant]
  9. PREGABALIN (PREGABALIN) [Concomitant]
  10. NEXIUM [Concomitant]
  11. LASIX(FUROSEMIDE, FUROSEMIDE SODIUM) [Concomitant]
  12. FRAGMIN [Concomitant]
  13. MAGNESIUM OXIDE(MAGNESIUM OXIDE) [Concomitant]

REACTIONS (8)
  - APNOEA [None]
  - ASTHENIA [None]
  - BRADYPNOEA [None]
  - HEART RATE INCREASED [None]
  - HYPOTENSION [None]
  - MIOSIS [None]
  - PAIN [None]
  - SYNCOPE [None]
